FAERS Safety Report 19530981 (Version 3)
Quarter: 2021Q3

REPORT INFORMATION
  Report Type: Spontaneous
  Country: US (occurrence: US)
  Receive Date: 20210714
  Receipt Date: 20210823
  Transmission Date: 20211014
  Serious: Yes (Other)
  Sender: FDA-Public Use
  Company Number: US-GLAXOSMITHKLINE-US2021149277

PATIENT
  Sex: Female

DRUGS (2)
  1. ZEJULA [Suspect]
     Active Substance: NIRAPARIB
     Dosage: 200MG ALTERNATING WITH 100MG EVERY OTHER DAY
     Route: 048
     Dates: start: 20210625
  2. ZEJULA [Suspect]
     Active Substance: NIRAPARIB
     Indication: OVARIAN CANCER
     Dosage: UNK
     Dates: start: 202106

REACTIONS (7)
  - Red blood cell count decreased [Unknown]
  - Dizziness [Unknown]
  - Product dose omission issue [Unknown]
  - White blood cell count decreased [Unknown]
  - Insomnia [Unknown]
  - Neuropathy peripheral [Unknown]
  - Asthenia [Unknown]
